FAERS Safety Report 5499742-9 (Version None)
Quarter: 2007Q4

REPORT INFORMATION
  Report Type: 
  Country: None (occurrence: None)
  Receive Date: 20071026
  Receipt Date: 20071023
  Transmission Date: 20080405
  Serious: Yes (Hospitalization)
  Sender: FDA-Public Use
  Company Number: GB-BOEHRINGER INGELHEIM PHARMACEUTICALS, INC.-2007-UK-03205UK

PATIENT
  Age: 39 Year
  Sex: Female

DRUGS (5)
  1. VIRAMUNE [Suspect]
     Indication: HIV INFECTION
     Dosage: 200X 2 DAY
     Route: 048
  2. DIDANOSINE [Suspect]
  3. LAMIVUDINE [Suspect]
     Indication: HIV INFECTION
     Dates: start: 20011201
  4. INDINIVIR SULFATE [Suspect]
  5. SEPTRIN [Concomitant]
     Indication: PROPHYLAXIS

REACTIONS (6)
  - ABDOMINAL DISTENSION [None]
  - CONSTIPATION [None]
  - HEPATIC FAILURE [None]
  - LACTIC ACIDOSIS [None]
  - MITOCHONDRIAL CYTOPATHY [None]
  - PORTAL VEIN THROMBOSIS [None]
